FAERS Safety Report 21393777 (Version 1)
Quarter: 2022Q3

REPORT INFORMATION
  Report Type: Spontaneous
  Country: CA (occurrence: CA)
  Receive Date: 20220930
  Receipt Date: 20220930
  Transmission Date: 20221027
  Serious: Yes (Life-Threatening, Hospitalization, Other)
  Sender: FDA-Public Use
  Company Number: CA-BAYER-2022A134996

PATIENT
  Age: 62 Year
  Sex: Female

DRUGS (13)
  1. RIVAROXABAN [Suspect]
     Active Substance: RIVAROXABAN
     Indication: Product used for unknown indication
     Dosage: 15 MG, QD
     Route: 048
  2. TYLENOL [Concomitant]
     Active Substance: ACETAMINOPHEN
  3. THIAMINE [Concomitant]
     Active Substance: THIAMINE
  4. ATROVENT [Concomitant]
     Active Substance: IPRATROPIUM BROMIDE
  5. ALBUTEROL [Concomitant]
     Active Substance: ALBUTEROL
  6. ZOPICLONE [Concomitant]
     Active Substance: ZOPICLONE
  7. DIGOXIN [Concomitant]
     Active Substance: DIGOXIN
  8. METOPROLOL [Concomitant]
     Active Substance: METOPROLOL
  9. PANTOPRAZOLE [Concomitant]
     Active Substance: PANTOPRAZOLE
  10. POTASSIUM CHLORIDE [Concomitant]
     Active Substance: POTASSIUM CHLORIDE
  11. FUROSEMIDE [Concomitant]
     Active Substance: FUROSEMIDE
  12. RAMIPRIL [Concomitant]
     Active Substance: RAMIPRIL
  13. NORTRIPTYLINE [Concomitant]
     Active Substance: NORTRIPTYLINE

REACTIONS (6)
  - Fluid replacement [Unknown]
  - Faeces discoloured [Unknown]
  - Haematemesis [Unknown]
  - Blood pressure decreased [Unknown]
  - Oesophagogastroduodenoscopy [Unknown]
  - Transfusion [Unknown]
